FAERS Safety Report 21625983 (Version 1)
Quarter: 2022Q4

REPORT INFORMATION
  Report Type: Spontaneous
  Country: RU (occurrence: RU)
  Receive Date: 20221122
  Receipt Date: 20221122
  Transmission Date: 20230113
  Serious: Yes (Other)
  Sender: FDA-Public Use
  Company Number: RU-SUN PHARMACEUTICAL INDUSTRIES LTD-2022R1-364776

PATIENT
  Age: 6 Year
  Sex: Male

DRUGS (5)
  1. DEXAMETHASONE [Suspect]
     Active Substance: DEXAMETHASONE
     Indication: Chemotherapy
     Dosage: 20 MILLIGRAM/SQ. METER
     Route: 065
     Dates: start: 20170413
  2. ASPARAGINASE [Suspect]
     Active Substance: ASPARAGINASE
     Indication: Chemotherapy
     Dosage: 6000 MILLIGRAM/SQ. METER
     Route: 065
     Dates: start: 20170413
  3. METHOTREXATE [Suspect]
     Active Substance: METHOTREXATE
     Indication: Chemotherapy
     Dosage: 2000 MILLIGRAM/SQ. METER
     Route: 065
     Dates: start: 20170413
  4. ETOPOSIDE [Suspect]
     Active Substance: ETOPOSIDE
     Indication: Chemotherapy
     Dosage: 100 MILLIGRAM/SQ. METER
     Route: 065
     Dates: start: 20170413
  5. IFOSFAMIDE [Suspect]
     Active Substance: IFOSFAMIDE
     Indication: Chemotherapy
     Dosage: 1500 MILLIGRAM
     Route: 065
     Dates: start: 20170413

REACTIONS (1)
  - Disease progression [Unknown]
